APPROVED DRUG PRODUCT: RUFINAMIDE
Active Ingredient: RUFINAMIDE
Strength: 40MG/ML
Dosage Form/Route: SUSPENSION;ORAL
Application: A216549 | Product #001 | TE Code: AB
Applicant: AUROBINDO PHARMA LTD
Approved: Oct 26, 2022 | RLD: No | RS: No | Type: RX